FAERS Safety Report 16150398 (Version 3)
Quarter: 2020Q3

REPORT INFORMATION
  Report Type: Spontaneous
  Country: AT (occurrence: AT)
  Receive Date: 20190403
  Receipt Date: 20200122
  Transmission Date: 20201105
  Serious: Yes (Death, Hospitalization)
  Sender: FDA-Public Use
  Company Number: AT-ROCHE-2291456

PATIENT
  Age: 80 Year
  Sex: Female

DRUGS (50)
  1. ATORVASTATIN [Interacting]
     Active Substance: ATORVASTATIN
     Indication: HYPERCHOLESTEROLAEMIA
     Route: 065
  2. SERTRALINE [Interacting]
     Active Substance: SERTRALINE HYDROCHLORIDE
     Indication: DEPRESSION
     Route: 065
  3. DICLOFENAC [Suspect]
     Active Substance: DICLOFENAC
     Indication: PAIN
     Dosage: 3 DOSES
     Route: 065
  4. BENSERAZIDE [Suspect]
     Active Substance: BENSERAZIDE
     Indication: RESTLESS LEGS SYNDROME
     Route: 065
  5. ALUMINIUM HYDROXIDE [Concomitant]
     Active Substance: ALUMINUM HYDROXIDE
     Indication: GASTROOESOPHAGEAL REFLUX DISEASE
     Route: 065
  6. MORPHINE HYDROCHLORIDE [Concomitant]
     Active Substance: MORPHINE HYDROCHLORIDE
     Route: 065
  7. IBANDRONIC ACID. [Suspect]
     Active Substance: IBANDRONIC ACID
     Indication: OSTEOPOROSIS
     Route: 065
  8. LEVOTHYROXINE. [Interacting]
     Active Substance: LEVOTHYROXINE
     Indication: HYPERTHYROIDISM
     Route: 065
  9. OXYGEN. [Interacting]
     Active Substance: OXYGEN
     Route: 065
  10. ALPRAZOLAM. [Interacting]
     Active Substance: ALPRAZOLAM
     Indication: DYSPNOEA
     Route: 065
  11. ACETAZOLAMIDE. [Interacting]
     Active Substance: ACETAZOLAMIDE
     Indication: HYPERCAPNIA
     Dosage: DRUG INTERVAL DOSAGE UNIT NUMBER 1 DAY
     Route: 065
  12. BISOPROLOL [Interacting]
     Active Substance: BISOPROLOL
     Indication: CORONARY ARTERY DISEASE
     Route: 065
  13. TAZOBACTAM SODIUM [Concomitant]
     Active Substance: TAZOBACTAM SODIUM
     Route: 065
  14. DIOSMIN [Interacting]
     Active Substance: DIOSMIN
     Indication: PERIPHERAL VENOUS DISEASE
     Route: 065
  15. RISPERIDONE. [Interacting]
     Active Substance: RISPERIDONE
     Indication: PRODUCT USED FOR UNKNOWN INDICATION
     Dosage: HALF DOSE AT NIGHT
     Route: 065
  16. GABAPENTIN. [Interacting]
     Active Substance: GABAPENTIN
     Indication: PAIN
     Route: 065
  17. IPRATROPIUM [Concomitant]
     Active Substance: IPRATROPIUM
     Route: 065
  18. FLUTICASONE. [Interacting]
     Active Substance: FLUTICASONE
     Indication: CHRONIC OBSTRUCTIVE PULMONARY DISEASE
     Route: 065
     Dates: start: 20151123
  19. ACETYLCYSTEINE. [Interacting]
     Active Substance: ACETYLCYSTEINE
     Indication: CHRONIC OBSTRUCTIVE PULMONARY DISEASE
     Route: 065
  20. SPIRIVA [Interacting]
     Active Substance: TIOTROPIUM BROMIDE MONOHYDRATE
     Indication: CHRONIC OBSTRUCTIVE PULMONARY DISEASE
     Route: 065
     Dates: start: 20151123
  21. METHYLPREDNISOLONE. [Interacting]
     Active Substance: METHYLPREDNISOLONE
     Indication: PRODUCT USED FOR UNKNOWN INDICATION
     Route: 042
  22. ALPRAZOLAM. [Interacting]
     Active Substance: ALPRAZOLAM
     Indication: FEAR
     Route: 065
  23. DULOXETINE HYDROCHLORIDE. [Interacting]
     Active Substance: DULOXETINE HYDROCHLORIDE
     Indication: PAIN
     Route: 065
  24. ACETYLSALICYLIC ACID [Interacting]
     Active Substance: ASPIRIN
     Indication: CORONARY ARTERY DISEASE
     Route: 065
  25. DIPHENHYDRAMINE. [Concomitant]
     Active Substance: DIPHENHYDRAMINE
     Route: 065
  26. CLOPIDOGREL BISULFATE. [Interacting]
     Active Substance: CLOPIDOGREL BISULFATE
     Indication: CORONARY ARTERY DISEASE
     Route: 065
  27. OXYGEN. [Interacting]
     Active Substance: OXYGEN
     Indication: PRODUCT USED FOR UNKNOWN INDICATION
     Route: 065
  28. LEVODOPA [Interacting]
     Active Substance: LEVODOPA
     Indication: RESTLESS LEGS SYNDROME
     Route: 065
  29. SERTRALINE [Interacting]
     Active Substance: SERTRALINE HYDROCHLORIDE
     Indication: PANIC ATTACK
  30. FENOTEROL [Interacting]
     Active Substance: FENOTEROL
     Indication: CHRONIC OBSTRUCTIVE PULMONARY DISEASE
     Dosage: MAX 4*2 PUFFS AS NEEDED IN CASE OF DYSPNOEA
     Route: 065
  31. SALMETEROL [Interacting]
     Active Substance: SALMETEROL
     Indication: CHRONIC OBSTRUCTIVE PULMONARY DISEASE
     Dosage: (2 DOSAGE FORMS,2?0?2)
     Route: 065
  32. THEOPHYLLINE [Interacting]
     Active Substance: THEOPHYLLINE ANHYDROUS
     Indication: CHRONIC OBSTRUCTIVE PULMONARY DISEASE
     Route: 065
  33. TRAMADOL. [Interacting]
     Active Substance: TRAMADOL
     Indication: PAIN
     Route: 065
  34. BISOPROLOL [Interacting]
     Active Substance: BISOPROLOL
     Dosage: DRUG INTERVAL DOSAGE UNIT NUMBER 1 DAY
     Route: 065
  35. FUROSEMIDE. [Concomitant]
     Active Substance: FUROSEMIDE
     Route: 065
  36. PIPERACILLIN SODIUM [Concomitant]
     Active Substance: PIPERACILLIN SODIUM
     Route: 065
  37. ERGOCALCIFEROL. [Interacting]
     Active Substance: ERGOCALCIFEROL
     Indication: VITAMIN D DEFICIENCY
     Route: 065
  38. PREDNISONE. [Interacting]
     Active Substance: PREDNISONE
     Indication: CHRONIC OBSTRUCTIVE PULMONARY DISEASE
     Route: 065
  39. PREDNISONE. [Interacting]
     Active Substance: PREDNISONE
     Route: 065
  40. ACETAZOLAMIDE. [Interacting]
     Active Substance: ACETAZOLAMIDE
     Indication: ALKALOSIS
     Route: 065
  41. LISALGIL [Interacting]
     Active Substance: METAMIZOLE SODIUM
     Indication: PRODUCT USED FOR UNKNOWN INDICATION
     Route: 042
  42. PRAMIPEXOLE HYDROCHLORIDE [Interacting]
     Active Substance: PRAMIPEXOLE DIHYDROCHLORIDE
     Indication: RESTLESS LEGS SYNDROME
     Route: 065
  43. HESPERIDIN [Concomitant]
     Active Substance: HESPERIDIN
     Route: 065
  44. LEVOTHYROXINE. [Interacting]
     Active Substance: LEVOTHYROXINE
     Dosage: HALF DOSE ONCE IN THE MORNING
     Route: 065
  45. FLUTICASONE. [Interacting]
     Active Substance: FLUTICASONE
     Route: 065
  46. OMEPRAZOLE. [Interacting]
     Active Substance: OMEPRAZOLE
     Indication: GASTRITIS
     Route: 065
  47. OXYGEN. [Interacting]
     Active Substance: OXYGEN
     Dosage: AS REQUIRED
     Route: 065
  48. HYDROMORPHONE [Interacting]
     Active Substance: HYDROMORPHONE
     Indication: PAIN
     Dosage: ONCE IN THE MORNING
     Route: 065
  49. DULOXETINE HYDROCHLORIDE. [Interacting]
     Active Substance: DULOXETINE HYDROCHLORIDE
     Indication: DEPRESSION
     Route: 065
  50. ACETAZOLAMIDE. [Interacting]
     Active Substance: ACETAZOLAMIDE
     Route: 065
     Dates: start: 20151123

REACTIONS (17)
  - Lung disorder [Fatal]
  - Drug interaction [Fatal]
  - Off label use [Fatal]
  - Back pain [Fatal]
  - Lung disorder [Unknown]
  - Chronic obstructive pulmonary disease [Fatal]
  - Pain [Unknown]
  - Arthralgia [Unknown]
  - Acute respiratory failure [Fatal]
  - Hypercapnia [Fatal]
  - Erysipelas [Fatal]
  - Urinary tract infection [Fatal]
  - Somnolence [Fatal]
  - Acute myocardial infarction [Fatal]
  - Clostridium difficile colitis [Fatal]
  - Delirium [Fatal]
  - Arthralgia [Fatal]
